FAERS Safety Report 8254598-6 (Version None)
Quarter: 2012Q1

REPORT INFORMATION
  Report Type: 
  Country: None (occurrence: None)
  Receive Date: 20120329
  Receipt Date: 20120314
  Transmission Date: 20120608
  Serious: Yes (Other)
  Sender: FDA-Public Use
  Company Number: JPI-P-020368

PATIENT
  Age: 77 Year
  Sex: Female
  Weight: 58.514 kg

DRUGS (13)
  1. CYCLOSPORINE [Concomitant]
  2. METOPROLOL TARTRATE [Concomitant]
  3. EZETIMIBE [Concomitant]
  4. FUROSEMIDE [Concomitant]
  5. DEXLANSOPRAZOLE [Concomitant]
  6. ZOLPIDEM TARTRATE [Concomitant]
  7. XYREM [Suspect]
     Indication: APNOEA
     Dosage: 9 GM (4.5 GM, 2 IN 1 D), ORAL
     Route: 048
     Dates: start: 20100318
  8. POLYETHYLENE GLUCOL [Concomitant]
  9. OMEPRAZOLE [Concomitant]
  10. LEVOTHYROXINE SODIUM [Concomitant]
  11. FEXOFENADINE HYDROCHLORIDE [Concomitant]
  12. KETOCONAZOLE [Concomitant]
  13. TRETINOIN [Concomitant]

REACTIONS (3)
  - APHASIA [None]
  - CEREBROVASCULAR ACCIDENT [None]
  - AMNESIA [None]
